FAERS Safety Report 8119181 (Version 3)
Quarter: 2012Q4

REPORT INFORMATION
  Report Type: 
  Country: NL (occurrence: NL)
  Receive Date: 20110902
  Receipt Date: 20121126
  Transmission Date: 20130627
  Serious: Yes (Other)
  Sender: FDA-Public Use
  Company Number: NL-GLAXOSMITHKLINE-B0743866A

PATIENT
  Sex: Male
  Weight: 75 kg

DRUGS (1)
  1. PAROXETINE [Suspect]
     Indication: PANIC DISORDER
     Route: 048
     Dates: start: 1999, end: 20110618

REACTIONS (3)
  - Polyneuropathy [Not Recovered/Not Resolved]
  - Erectile dysfunction [Not Recovered/Not Resolved]
  - Neuropathy peripheral [Unknown]
